FAERS Safety Report 21394273 (Version 1)
Quarter: 2022Q3

REPORT INFORMATION
  Report Type: Spontaneous
  Country: DE (occurrence: DE)
  Receive Date: 20220930
  Receipt Date: 20220930
  Transmission Date: 20221027
  Serious: Yes (Hospitalization)
  Sender: FDA-Public Use
  Company Number: DE-ADRED-05960-03

PATIENT
  Age: 87 Year
  Sex: Female
  Weight: 70 kg

DRUGS (6)
  1. TORSEMIDE [Suspect]
     Active Substance: TORSEMIDE
     Indication: Product used for unknown indication
     Dosage: 150 MILLIGRAM DAILY; 100 MG, 1-0-0.5-0
     Route: 065
  2. RAMIPRIL [Concomitant]
     Active Substance: RAMIPRIL
     Indication: Product used for unknown indication
     Dosage: .5 DOSAGE FORMS DAILY; 2.5 MG, 0.5-0-0-0
  3. BISOPROLOL [Concomitant]
     Active Substance: BISOPROLOL
     Indication: Product used for unknown indication
     Dosage: 10 MILLIGRAM DAILY; 5 MG, 1-0-1-0
  4. LEVOTHYROXINE SODIUM [Concomitant]
     Active Substance: LEVOTHYROXINE SODIUM
     Indication: Product used for unknown indication
     Dosage: 88 MICROGRAM DAILY; 88 UG, 1-0-0-0
  5. PIPAMPERONE HYDROCHLORIDE [Concomitant]
     Active Substance: PIPAMPERONE HYDROCHLORIDE
     Indication: Product used for unknown indication
     Dosage: 80 MILLIGRAM DAILY; 40 MG, 0-0-1-1
  6. APIXABAN [Concomitant]
     Active Substance: APIXABAN
     Indication: Product used for unknown indication
     Dosage: 5 MILLIGRAM DAILY; 2.5 MG, 1-0-1-0

REACTIONS (5)
  - Arrhythmia [Unknown]
  - Oedema peripheral [Unknown]
  - Erythema [Unknown]
  - Product prescribing error [Unknown]
  - Weight increased [Unknown]
